FAERS Safety Report 24808002 (Version 1)
Quarter: 2025Q1

REPORT INFORMATION
  Report Type: Spontaneous
  Country: BR (occurrence: BR)
  Receive Date: 20250106
  Receipt Date: 20250106
  Transmission Date: 20250409
  Serious: Yes (Hospitalization)
  Sender: SANDOZ
  Company Number: BR-002147023-NVSC2024BR148058

PATIENT
  Sex: Female

DRUGS (4)
  1. EXELON [Suspect]
     Active Substance: RIVASTIGMINE TARTRATE
     Indication: Memory impairment
     Dosage: 1 DOSAGE FORM, QD (EXTENDED RELEASE) (10CM)
     Route: 062
     Dates: end: 202407
  2. FLUTICASONE FUROATE [Concomitant]
     Active Substance: FLUTICASONE FUROATE
     Indication: Product used for unknown indication
     Route: 065
  3. CLOPIDOGREL [Concomitant]
     Active Substance: CLOPIDOGREL BISULFATE
     Indication: Product used for unknown indication
     Route: 065
  4. LIPITOR [Concomitant]
     Active Substance: ATORVASTATIN CALCIUM
     Indication: Product used for unknown indication
     Route: 065

REACTIONS (16)
  - Dyspnoea [Recovering/Resolving]
  - Tremor [Recovered/Resolved]
  - Restlessness [Recovered/Resolved]
  - Gastrointestinal disorder [Not Recovered/Not Resolved]
  - Cardiac failure [Recovering/Resolving]
  - Heart rate irregular [Recovering/Resolving]
  - Abdominal discomfort [Recovering/Resolving]
  - Malaise [Recovered/Resolved]
  - Abnormal behaviour [Not Recovered/Not Resolved]
  - Urinary incontinence [Not Recovered/Not Resolved]
  - Decreased appetite [Not Recovered/Not Resolved]
  - Nausea [Not Recovered/Not Resolved]
  - Vomiting [Not Recovered/Not Resolved]
  - Headache [Recovered/Resolved]
  - Diarrhoea [Recovered/Resolved]
  - Product use in unapproved indication [Unknown]

NARRATIVE: CASE EVENT DATE: 20240101
